FAERS Safety Report 8395467-0 (Version None)
Quarter: 2012Q2

REPORT INFORMATION
  Report Type: 
  Country: None (occurrence: None)
  Receive Date: 20120525
  Receipt Date: 20120525
  Transmission Date: 20120825
  Serious: No
  Sender: FDA-Public Use
  Company Number: None

PATIENT
  Sex: Female

DRUGS (1)
  1. PROMETHAZINE [Suspect]
     Dosage: 6.25 MG 4X DAILY BY MOUTH
     Route: 048

REACTIONS (5)
  - INCREASED UPPER AIRWAY SECRETION [None]
  - PRURITUS [None]
  - OEDEMA PERIPHERAL [None]
  - COUGH [None]
  - DYSPNOEA [None]
